FAERS Safety Report 23446987 (Version 1)
Quarter: 2024Q1

REPORT INFORMATION
  Report Type: Spontaneous
  Country: US (occurrence: None)
  Receive Date: 20240125
  Receipt Date: 20240125
  Transmission Date: 20240410
  Serious: Yes (Disabling)
  Sender: FDA-Public Use
  Company Number: None

PATIENT
  Age: 28 Year
  Sex: Female
  Weight: 54 kg

DRUGS (9)
  1. ISOTRETINOIN [Suspect]
     Active Substance: ISOTRETINOIN
     Indication: Acne cystic
     Dosage: FREQUENCY : DAILY;?
     Route: 048
     Dates: start: 20240109, end: 20240122
  2. VYVANSE [Concomitant]
     Active Substance: LISDEXAMFETAMINE DIMESYLATE
  3. Wellbutrin 300XL [Concomitant]
  4. Seroquel (Blisovi) [Concomitant]
  5. ATIVAN [Concomitant]
     Active Substance: LORAZEPAM
  6. VRAYLAR [Concomitant]
     Active Substance: CARIPRAZINE
  7. Weroquel [Concomitant]
  8. Seysara (Blisovi) [Concomitant]
  9. ATIVAN [Concomitant]
     Active Substance: LORAZEPAM

REACTIONS (3)
  - Anxiety [None]
  - Irritability [None]
  - Crying [None]

NARRATIVE: CASE EVENT DATE: 20240117
